FAERS Safety Report 4393223-1 (Version None)
Quarter: 2004Q3

REPORT INFORMATION
  Report Type: 
  Country: None (occurrence: None)
  Receive Date: 20040702
  Receipt Date: 20040622
  Transmission Date: 20050211
  Serious: Yes (Death)
  Sender: FDA-Public Use
  Company Number: JP-JNJFOC-20040605831

PATIENT
  Age: 78 Year
  Sex: Male

DRUGS (8)
  1. LEVOFLOXACIN [Suspect]
     Indication: DRUG USE FOR UNKNOWN INDICATION
     Dosage: 500 MG, 1 IN 1 DAY
     Dates: start: 20031022, end: 20031031
  2. PRAXIPARINE (HEPARIN-FRACTION, CALCIUM SALT) [Concomitant]
  3. COMBIVENT [Concomitant]
  4. ZANTAC [Concomitant]
  5. LASIX [Concomitant]
  6. MOVICAL (ALL OTHER THERAPEUTIC PRODUCTS) [Concomitant]
  7. SPASMOFEN (SPASMOFEN) [Concomitant]
  8. OMEPRAZOLE [Concomitant]

REACTIONS (3)
  - ANURIA [None]
  - CACHEXIA [None]
  - CARDIAC FAILURE [None]
